FAERS Safety Report 10575560 (Version 1)
Quarter: 2014Q4

REPORT INFORMATION
  Report Type: Spontaneous
  Country: US (occurrence: None)
  Receive Date: 20141110
  Receipt Date: 20141110
  Transmission Date: 20150529
  Serious: Yes (Death, Life-Threatening, Hospitalization)
  Sender: FDA-Public Use
  Company Number: None

PATIENT
  Age: 26 Year
  Sex: Male
  Weight: 62.3 kg

DRUGS (1)
  1. AZATHIOPRINE. [Suspect]
     Active Substance: AZATHIOPRINE
     Indication: COLITIS ULCERATIVE
     Route: 048
     Dates: start: 20140509, end: 20141026

REACTIONS (11)
  - Anorectal swelling [None]
  - Thrombocytopenia [None]
  - Pyrexia [None]
  - Gastric haemorrhage [None]
  - Mouth ulceration [None]
  - Dysuria [None]
  - Diarrhoea haemorrhagic [None]
  - Anaemia [None]
  - Abdominal pain [None]
  - Haemorrhage [None]
  - Leukopenia [None]

NARRATIVE: CASE EVENT DATE: 20141027
